FAERS Safety Report 25518638 (Version 1)
Quarter: 2025Q3

REPORT INFORMATION
  Report Type: Spontaneous
  Country: US (occurrence: US)
  Receive Date: 20250704
  Receipt Date: 20250704
  Transmission Date: 20251021
  Serious: No
  Sender: Unknown Manufacturer
  Company Number: US-862174955-ML2025-03167

PATIENT
  Sex: Female

DRUGS (1)
  1. CROMOLYN SODIUM [Suspect]
     Active Substance: CROMOLYN SODIUM
     Indication: Mast cell activation syndrome
     Route: 048

REACTIONS (4)
  - Asthma [Unknown]
  - Respiration abnormal [Unknown]
  - Dyspnoea [Unknown]
  - Product quality issue [Unknown]
